FAERS Safety Report 26117237 (Version 1)
Quarter: 2025Q4

REPORT INFORMATION
  Report Type: Other
  Country: US (occurrence: US)
  Receive Date: 20251203
  Receipt Date: 20251203
  Transmission Date: 20260117
  Serious: Yes (Hospitalization, Other)
  Sender: ANI
  Company Number: US-ANIPHARMA-031249

PATIENT
  Age: 17 Year
  Sex: Female

DRUGS (1)
  1. FLECAINIDE [Suspect]
     Active Substance: FLECAINIDE
     Indication: Product used for unknown indication
     Dosage: UNKNOWN AMOUNT
     Route: 048

REACTIONS (8)
  - Seizure [Unknown]
  - Cardiac arrest [Unknown]
  - Tachycardia [Unknown]
  - Ventricular tachycardia [Unknown]
  - Hypotension [Unknown]
  - Arrhythmia [Unknown]
  - Haemodynamic instability [Unknown]
  - Intentional overdose [Unknown]
